FAERS Safety Report 16202902 (Version 2)
Quarter: 2019Q2

REPORT INFORMATION
  Report Type: Report from Study
  Country: CA (occurrence: CA)
  Receive Date: 20190416
  Receipt Date: 20190605
  Transmission Date: 20190711
  Serious: Yes (Death, Other)
  Sender: FDA-Public Use
  Company Number: CA-ACTELION-A-US2018-184006

PATIENT
  Age: 70 Year
  Sex: Female

DRUGS (21)
  1. TRESIBA [Concomitant]
     Active Substance: INSULIN DEGLUDEC
  2. SPIRIVA [Concomitant]
     Active Substance: TIOTROPIUM BROMIDE MONOHYDRATE
  3. AMLODIPINE [Concomitant]
     Active Substance: AMLODIPINE BESYLATE
  4. HYDROMORPHONE [Concomitant]
     Active Substance: HYDROMORPHONE
  5. ATORVASTATIN [Concomitant]
     Active Substance: ATORVASTATIN
  6. LASIX [Concomitant]
     Active Substance: FUROSEMIDE
  7. DILTIAZEM. [Concomitant]
     Active Substance: DILTIAZEM
  8. METOPROLOL. [Concomitant]
     Active Substance: METOPROLOL
  9. XARELTO [Concomitant]
     Active Substance: RIVAROXABAN
  10. RAMIPRIL. [Concomitant]
     Active Substance: RAMIPRIL
  11. PREGABALIN. [Concomitant]
     Active Substance: PREGABALIN
  12. VENTOLIN [Concomitant]
     Active Substance: ALBUTEROL SULFATE
  13. OPSUMIT [Suspect]
     Active Substance: MACITENTAN
     Indication: PULMONARY ARTERIAL HYPERTENSION
     Dosage: 10 MG, QD
     Route: 048
     Dates: start: 20181214
  14. SENOKOT [Concomitant]
     Active Substance: SENNOSIDES
  15. METOCLOPRAMIDE. [Concomitant]
     Active Substance: METOCLOPRAMIDE
  16. HUMALOG [Concomitant]
     Active Substance: INSULIN LISPRO
  17. RABEPRAZOLE [Concomitant]
     Active Substance: RABEPRAZOLE
  18. VENLAFAXINE [Concomitant]
     Active Substance: VENLAFAXINE HYDROCHLORIDE
  19. METFORMIN [Concomitant]
     Active Substance: METFORMIN HYDROCHLORIDE
  20. BISOPROLOL [Concomitant]
     Active Substance: BISOPROLOL
  21. DULCOLAX NOS [Concomitant]
     Active Substance: BISACODYL OR DOCUSATE SODIUM

REACTIONS (7)
  - Lung neoplasm malignant [Fatal]
  - Feeling abnormal [Recovered/Resolved]
  - Organ failure [Unknown]
  - Dyspnoea [Recovered/Resolved]
  - Metastatic neoplasm [Unknown]
  - Surgery [Unknown]
  - Poor quality sleep [Recovered/Resolved]

NARRATIVE: CASE EVENT DATE: 201812
